FAERS Safety Report 17470011 (Version 3)
Quarter: 2020Q4

REPORT INFORMATION
  Report Type: Spontaneous
  Country: JP (occurrence: JP)
  Receive Date: 20200227
  Receipt Date: 20201007
  Transmission Date: 20210113
  Serious: Yes (Other)
  Sender: FDA-Public Use
  Company Number: JP-BAYER-2020-033983

PATIENT
  Age: 80 Year
  Sex: Male
  Weight: 54 kg

DRUGS (3)
  1. LENVIMA [Suspect]
     Active Substance: LENVATINIB
     Indication: HEPATOCELLULAR CARCINOMA
     Dosage: DAILY DOSE 8 MG
     Route: 048
     Dates: start: 20190211, end: 20190313
  2. NEXAVAR [Suspect]
     Active Substance: SORAFENIB
     Indication: HEPATOCELLULAR CARCINOMA
     Dosage: DAILY DOSE 400 MG
     Route: 048
     Dates: start: 20170907, end: 20190124
  3. LENVIMA [Suspect]
     Active Substance: LENVATINIB
     Indication: HEPATOCELLULAR CARCINOMA
     Dosage: DAILY DOSE 4 MG
     Route: 048
     Dates: start: 20190314, end: 20191009

REACTIONS (6)
  - Hepatocellular carcinoma [None]
  - Aspartate aminotransferase increased [Recovering/Resolving]
  - Adverse reaction [None]
  - Alanine aminotransferase increased [Recovering/Resolving]
  - Hepatitis B reactivation [Recovering/Resolving]
  - Off label use [None]

NARRATIVE: CASE EVENT DATE: 20190124
